FAERS Safety Report 6047964-0 (Version None)
Quarter: 2009Q1

REPORT INFORMATION
  Report Type: 
  Country: None (occurrence: None)
  Receive Date: 20090123
  Receipt Date: 20090112
  Transmission Date: 20090719
  Serious: Yes (Hospitalization)
  Sender: FDA-Public Use
  Company Number: US-BAXTER-2009BH000663

PATIENT
  Age: 62 Year
  Sex: Female

DRUGS (3)
  1. DIANEAL [Suspect]
     Indication: RENAL FAILURE CHRONIC
     Route: 033
     Dates: start: 20071008
  2. DIANEAL [Suspect]
     Indication: RENAL FAILURE CHRONIC
     Route: 033
     Dates: start: 20071008
  3. UNSPECIFIED BLOOD PRESSURE MEDICATIONS [Suspect]
     Indication: HYPERTENSION
     Route: 065
     Dates: end: 20090101

REACTIONS (2)
  - DIZZINESS [None]
  - HYPOTENSION [None]
